FAERS Safety Report 19300458 (Version 2)
Quarter: 2021Q2

REPORT INFORMATION
  Report Type: Spontaneous
  Country: US (occurrence: US)
  Receive Date: 20210525
  Receipt Date: 20210614
  Transmission Date: 20210717
  Serious: No
  Sender: FDA-Public Use
  Company Number: US-JNJFOC-20210525999

PATIENT
  Age: 38 Year
  Sex: Male
  Weight: 83.99 kg

DRUGS (1)
  1. MENS ROGAINE EXTRA STRENGTH [Suspect]
     Active Substance: MINOXIDIL
     Indication: ALOPECIA
     Dosage: LAST DOSE ADMINISTERED: 12?MAY?2021
     Route: 061
     Dates: start: 20201220

REACTIONS (1)
  - Drug ineffective [Unknown]
